FAERS Safety Report 9525742 (Version 3)
Quarter: 2013Q4

REPORT INFORMATION
  Report Type: Report from Study
  Country: FR (occurrence: FR)
  Receive Date: 20130916
  Receipt Date: 20131106
  Transmission Date: 20140711
  Serious: Yes (Hospitalization)
  Sender: FDA-Public Use
  Company Number: FR-009507513-1309FRA003451

PATIENT
  Age: 11 Year
  Sex: Male

DRUGS (18)
  1. TEMOZOLOMIDE [Suspect]
     Dosage: 180 MG, QD
     Route: 065
     Dates: start: 20130703, end: 20130707
  2. TEMOZOLOMIDE [Suspect]
     Dosage: 240 MG, QD
     Route: 065
     Dates: start: 20130730, end: 20130803
  3. BEVACIZUMAB [Suspect]
     Indication: BRAIN NEOPLASM MALIGNANT
     Dosage: 362.5 MG, QD
     Route: 065
     Dates: start: 20130422, end: 20130422
  4. BEVACIZUMAB [Suspect]
     Dosage: 387.5 MG, QD
     Dates: start: 20130715, end: 20130715
  5. BEVACIZUMAB [Suspect]
     Dosage: 350 MG, QD
     Dates: start: 20130506, end: 20130506
  6. BEVACIZUMAB [Suspect]
     Dosage: 387.5 MG, QD
     Dates: start: 20130812
  7. THERAPEUTIC RADIOPHARMACEUTICAL (UNSPECIFIED) [Suspect]
     Indication: BRAIN NEOPLASM MALIGNANT
     Dosage: 9 DF, QD
     Route: 065
     Dates: start: 20130422, end: 20130426
  8. THERAPEUTIC RADIOPHARMACEUTICAL (UNSPECIFIED) [Suspect]
     Dosage: 7.2 DF, QD
     Route: 065
     Dates: start: 20130429, end: 20130503
  9. THERAPEUTIC RADIOPHARMACEUTICAL (UNSPECIFIED) [Suspect]
     Dosage: 5.4 DF, QD
     Route: 065
     Dates: start: 20130506, end: 20130510
  10. THERAPEUTIC RADIOPHARMACEUTICAL (UNSPECIFIED) [Suspect]
     Dosage: 7.2 DF, QD
     Route: 065
     Dates: start: 20130513, end: 20130517
  11. THERAPEUTIC RADIOPHARMACEUTICAL (UNSPECIFIED) [Suspect]
     Dosage: 7.2 DF, QD
     Route: 065
     Dates: start: 20130521, end: 20130524
  12. THERAPEUTIC RADIOPHARMACEUTICAL (UNSPECIFIED) [Suspect]
     Dosage: 9 DF, QD
     Route: 065
     Dates: start: 20130527, end: 20130531
  13. THERAPEUTIC RADIOPHARMACEUTICAL (UNSPECIFIED) [Suspect]
     Dosage: 9 DF, QD
     Route: 065
     Dates: start: 20130603, end: 20130607
  14. DECTANCYL [Concomitant]
     Dosage: 2.5 MG, TID
     Route: 048
     Dates: start: 20130502, end: 20130503
  15. DECTANCYL [Concomitant]
     Dosage: 2.5 MG, BID
     Route: 048
     Dates: start: 20130410, end: 20130501
  16. DECTANCYL [Concomitant]
     Dosage: 2.5 MG, UNK
     Route: 048
  17. BACTRIM [Concomitant]
     Indication: PROPHYLAXIS
     Dosage: UNK
     Dates: start: 20130422
  18. ZOPHREN (ONDANSETRON HYDROCHLORIDE) [Concomitant]
     Indication: PROPHYLAXIS
     Dosage: UNK
     Route: 048
     Dates: start: 20130422, end: 20130426

REACTIONS (1)
  - Febrile bone marrow aplasia [Recovered/Resolved]
